FAERS Safety Report 9832228 (Version 2)
Quarter: 2014Q2

REPORT INFORMATION
  Report Type: Report from Study
  Country: ES (occurrence: ES)
  Receive Date: 20140121
  Receipt Date: 20140411
  Transmission Date: 20141212
  Serious: Yes (Death)
  Sender: FDA-Public Use
  Company Number: ES-EISAI INC-E7389-04646-CLI-ES

PATIENT
  Age: 69 Year
  Sex: Male

DRUGS (4)
  1. ERIBULIN [Suspect]
     Indication: BLADDER CANCER
     Dosage: 1.688 MG
     Route: 041
     Dates: start: 20131224, end: 20131224
  2. CISPLATIN [Concomitant]
     Indication: BLADDER CANCER
     Dosage: 118.0 MG
     Route: 041
     Dates: start: 20131224, end: 20131224
  3. GEMCITABINE [Concomitant]
     Indication: BLADDER CANCER
     Dosage: 1688 MG
     Route: 041
     Dates: start: 20131224, end: 20131224
  4. BISOPROLOL [Concomitant]

REACTIONS (1)
  - Cerebrovascular accident [Fatal]
